FAERS Safety Report 7995225-2 (Version None)
Quarter: 2011Q4

REPORT INFORMATION
  Report Type: 
  Country: None (occurrence: None)
  Receive Date: 20111220
  Receipt Date: 20111220
  Transmission Date: 20120403
  Serious: Yes (Life-Threatening, Hospitalization, Other)
  Sender: FDA-Public Use
  Company Number: None

PATIENT
  Age: 74 Year
  Sex: Female
  Weight: 56 kg

DRUGS (1)
  1. PRADAXA [Suspect]
     Indication: ATRIAL FIBRILLATION
     Dosage: 150 MG
     Route: 048
     Dates: start: 20110601, end: 20111218

REACTIONS (8)
  - INTERNATIONAL NORMALISED RATIO DECREASED [None]
  - VOMITING [None]
  - UNRESPONSIVE TO STIMULI [None]
  - INTRAVENTRICULAR HAEMORRHAGE [None]
  - ACTIVATED PARTIAL THROMBOPLASTIN TIME PROLONGED [None]
  - HYDROCEPHALUS [None]
  - HEADACHE [None]
  - BRAIN MIDLINE SHIFT [None]
